FAERS Safety Report 21129712 (Version 2)
Quarter: 2023Q4

REPORT INFORMATION
  Report Type: Spontaneous
  Country: US (occurrence: US)
  Receive Date: 20220726
  Receipt Date: 20231016
  Transmission Date: 20240110
  Serious: No
  Sender: FDA-Public Use
  Company Number: US-AMGEN-USASP2022126496

PATIENT
  Age: 23 Year
  Sex: Male

DRUGS (13)
  1. FILGRASTIM [Suspect]
     Active Substance: FILGRASTIM
     Indication: Leukopenia
     Dosage: 300 MICROGRAM, QD, FOR 3 DAYS MONTLY
     Route: 065
  2. FILGRASTIM [Suspect]
     Active Substance: FILGRASTIM
     Indication: Off label use
  3. CLOBAZAM [Concomitant]
     Active Substance: CLOBAZAM
     Indication: Epilepsy
     Dosage: UNK
  4. ZONISAMIDE [Concomitant]
     Active Substance: ZONISAMIDE
     Indication: Epilepsy
     Dosage: UNK
  5. PREDNISONE [Concomitant]
     Active Substance: PREDNISONE
     Dosage: 20 MILLIGRAM, EVERY OTHER DAY
  6. CARNITINE [Concomitant]
     Active Substance: CARNITINE
     Indication: Neuromyelitis optica spectrum disorder
     Dosage: UNK
  7. CARNITINE [Concomitant]
     Active Substance: CARNITINE
     Indication: Mitochondrial toxicity
  8. RIBOFLAVIN [Concomitant]
     Active Substance: RIBOFLAVIN
     Indication: Neuromyelitis optica spectrum disorder
     Dosage: UNK
  9. RIBOFLAVIN [Concomitant]
     Active Substance: RIBOFLAVIN
     Indication: Mitochondrial toxicity
  10. THIAMINE [Concomitant]
     Active Substance: THIAMINE
     Indication: Neuromyelitis optica spectrum disorder
     Dosage: UNK
  11. THIAMINE [Concomitant]
     Active Substance: THIAMINE
     Indication: Mitochondrial toxicity
  12. ARGININE [Concomitant]
     Active Substance: ARGININE
     Indication: Neuromyelitis optica spectrum disorder
     Dosage: UNK
  13. ARGININE [Concomitant]
     Active Substance: ARGININE
     Indication: Mitochondrial toxicity

REACTIONS (2)
  - Drug effective for unapproved indication [Unknown]
  - Off label use [Unknown]
